FAERS Safety Report 9405616 (Version 1)
Quarter: 2013Q3

REPORT INFORMATION
  Report Type: Spontaneous
  Country: US (occurrence: US)
  Receive Date: 20130717
  Receipt Date: 20130717
  Transmission Date: 20140515
  Serious: No
  Sender: FDA-Public Use
  Company Number: US-009507513-1307USA004963

PATIENT
  Age: 23 Year
  Sex: Female
  Weight: 110.66 kg

DRUGS (1)
  1. NEXPLANON [Suspect]
     Indication: CONTRACEPTION
     Dosage: 3 YEAR IMPLANT
     Route: 059
     Dates: start: 20130612, end: 20130707

REACTIONS (4)
  - Skin irritation [Unknown]
  - Insomnia [Unknown]
  - Device expulsion [Unknown]
  - Product quality issue [Unknown]
